FAERS Safety Report 13175433 (Version 1)
Quarter: 2017Q1

REPORT INFORMATION
  Report Type: Spontaneous
  Country: US (occurrence: US)
  Receive Date: 20170201
  Receipt Date: 20170201
  Transmission Date: 20170428
  Serious: Yes (Life-Threatening, Hospitalization)
  Sender: FDA-Public Use
  Company Number: US-PFIZER INC-2017044567

PATIENT
  Age: 59 Year
  Sex: Male

DRUGS (8)
  1. DEPAKOTE [Concomitant]
     Active Substance: DIVALPROEX SODIUM
  2. LEXAPRO [Suspect]
     Active Substance: ESCITALOPRAM OXALATE
     Indication: DEPRESSION
     Dosage: 10 MG, 1X/DAY
     Route: 048
     Dates: start: 20030723, end: 20060302
  3. LEXAPRO [Suspect]
     Active Substance: ESCITALOPRAM OXALATE
     Dosage: 20 MG, SINGLE
     Route: 048
     Dates: start: 20060303, end: 20060303
  4. REBIF [Suspect]
     Active Substance: INTERFERON BETA-1A
     Indication: MULTIPLE SCLEROSIS
     Dosage: 44 UG, THREE TIMES A WEEK
     Route: 058
     Dates: start: 20051229, end: 20060301
  5. LEXAPRO [Suspect]
     Active Substance: ESCITALOPRAM OXALATE
     Dosage: 10 MG, 1X/DAY
     Route: 048
     Dates: start: 20060104, end: 20060901
  6. DILANTIN [Concomitant]
     Active Substance: PHENYTOIN
  7. AMBIEN [Concomitant]
     Active Substance: ZOLPIDEM TARTRATE
  8. DOXEPIN HCL [Suspect]
     Active Substance: DOXEPIN HYDROCHLORIDE
     Indication: INSOMNIA
     Dosage: 2 DF, SINGLE
     Route: 048
     Dates: start: 20060303, end: 20060303

REACTIONS (11)
  - Memory impairment [Unknown]
  - Condition aggravated [Unknown]
  - Depression [Unknown]
  - Seizure [Unknown]
  - Incorrect dose administered [Unknown]
  - Influenza [Unknown]
  - Therapy non-responder [Unknown]
  - Overdose [Unknown]
  - Speech disorder [Unknown]
  - Complex partial seizures [Unknown]
  - Insomnia [Unknown]
